FAERS Safety Report 24837189 (Version 1)
Quarter: 2025Q1

REPORT INFORMATION
  Report Type: Spontaneous
  Country: IT (occurrence: None)
  Receive Date: 20250111
  Receipt Date: 20250111
  Transmission Date: 20250409
  Serious: Yes (Disabling)
  Sender: FDA-CTU
  Company Number: None

PATIENT
  Sex: Male

DRUGS (1)
  1. PAROXETINE [Suspect]
     Active Substance: PAROXETINE
     Dates: start: 20220301, end: 20220301

REACTIONS (2)
  - Genital anaesthesia [None]
  - Erectile dysfunction [None]

NARRATIVE: CASE EVENT DATE: 20220301
